FAERS Safety Report 10245919 (Version 1)
Quarter: 2014Q2

REPORT INFORMATION
  Report Type: Report from Study
  Country: CA (occurrence: CA)
  Receive Date: 20140619
  Receipt Date: 20140619
  Transmission Date: 20141212
  Serious: Yes (Other)
  Sender: FDA-Public Use
  Company Number: CA-BRISTOL-MYERS SQUIBB COMPANY-21050455

PATIENT
  Age: 84 Year
  Sex: Female

DRUGS (3)
  1. ORENCIA [Suspect]
     Indication: RHEUMATOID ARTHRITIS
     Route: 042
     Dates: start: 20140407
  2. PREDNISONE [Concomitant]
  3. CELEBREX [Concomitant]

REACTIONS (3)
  - Cataract [Unknown]
  - Drug ineffective [Unknown]
  - Contusion [Unknown]
